FAERS Safety Report 9645125 (Version 1)
Quarter: 2013Q4

REPORT INFORMATION
  Report Type: Spontaneous
  Country: US (occurrence: US)
  Receive Date: 20131025
  Receipt Date: 20131025
  Transmission Date: 20140711
  Serious: No
  Sender: FDA-Public Use
  Company Number: US-BAYER-2013-129727

PATIENT
  Age: 51 Year
  Sex: Female
  Weight: 129.71 kg

DRUGS (3)
  1. ALEVE CAPLET [Suspect]
     Indication: ARTHRITIS
     Dosage: 2 DF, BID
     Route: 048
     Dates: start: 20131009
  2. ALEVE CAPLET [Suspect]
     Indication: INFLAMMATION
  3. FISH OIL [Concomitant]

REACTIONS (2)
  - Extra dose administered [None]
  - Off label use [None]
